FAERS Safety Report 18673988 (Version 1)
Quarter: 2020Q4

REPORT INFORMATION
  Report Type: Spontaneous
  Country: US (occurrence: US)
  Receive Date: 20201228
  Receipt Date: 20201228
  Transmission Date: 20210114
  Serious: No
  Sender: FDA-Public Use
  Company Number: US-PAIPHARMA-2020-US-020213

PATIENT
  Age: 71 Year
  Sex: Male
  Weight: 89.81 kg

DRUGS (1)
  1. VALPROIC ACID ORAL SOLUTION USP, AF [Suspect]
     Active Substance: VALPROIC ACID
     Indication: BIPOLAR DISORDER
     Dosage: 10ML IN MORNING, 5ML IN EVENING
     Route: 048
     Dates: start: 2010

REACTIONS (1)
  - Pruritus [Not Recovered/Not Resolved]

NARRATIVE: CASE EVENT DATE: 20101002
